FAERS Safety Report 18468202 (Version 4)
Quarter: 2020Q4

REPORT INFORMATION
  Report Type: Report from Study
  Country: CN (occurrence: CN)
  Receive Date: 20201105
  Receipt Date: 20201217
  Transmission Date: 20210114
  Serious: Yes (Hospitalization, Other)
  Sender: FDA-Public Use
  Company Number: CN-GLAXOSMITHKLINE-CN2020GSK214573

PATIENT
  Age: 48 Year
  Sex: Female
  Weight: 45.8 kg

DRUGS (2)
  1. TPIAO [Concomitant]
     Dosage: 15000 IU/1 ML / BOTTLE, A TOTAL OF 9 BOTTLES
     Route: 058
     Dates: start: 20200927, end: 20201027
  2. NIRAPARIB [Suspect]
     Active Substance: NIRAPARIB
     Indication: OVARIAN CANCER
     Dosage: 200 MG, QD
     Dates: start: 20190114, end: 20200925

REACTIONS (1)
  - Myelosuppression [Not Recovered/Not Resolved]

NARRATIVE: CASE EVENT DATE: 20201015
